FAERS Safety Report 6443672-2 (Version None)
Quarter: 2009Q4

REPORT INFORMATION
  Report Type: 
  Country: None (occurrence: None)
  Receive Date: 20091117
  Receipt Date: 20091106
  Transmission Date: 20100525
  Serious: Yes (Other)
  Sender: FDA-Public Use
  Company Number: PHEH2009US09419

PATIENT
  Sex: Male

DRUGS (8)
  1. TASIGNA [Suspect]
     Indication: CHRONIC MYELOID LEUKAEMIA
     Dosage: 400 MG, BID
     Route: 048
     Dates: start: 20090701
  2. TOPAMAX [Concomitant]
  3. OXYCODONE HCL [Concomitant]
     Dosage: 5 MG, Q4H
     Dates: start: 20090622
  4. ALLOPURINOL [Concomitant]
     Dosage: 150 MG, UNK
     Dates: start: 20090322
  5. CELEXA [Concomitant]
     Dosage: 20 MG, QD
     Dates: start: 20090322
  6. BENTYL [Concomitant]
     Dosage: 20 MG BEFORE MEALS
     Dates: start: 20090323
  7. SODIUM BICARBONATE IN PLASTIC CONTAINER [Concomitant]
     Dosage: 650 MG, TID
     Dates: start: 20090307
  8. STOOL SOFTENER [Concomitant]
     Dosage: 3 CAPS AT BEDTIME AS NEEDED

REACTIONS (4)
  - CONVULSION [None]
  - LOSS OF CONSCIOUSNESS [None]
  - MIGRAINE [None]
  - VENOUS ANGIOMA OF BRAIN [None]
